FAERS Safety Report 17921088 (Version 1)
Quarter: 2020Q2

REPORT INFORMATION
  Report Type: Report from Study
  Country: US (occurrence: US)
  Receive Date: 20200622
  Receipt Date: 20200622
  Transmission Date: 20200714
  Serious: Yes (Hospitalization, Other)
  Sender: FDA-Public Use
  Company Number: US-ROCHE-2624149

PATIENT

DRUGS (24)
  1. PRINIVIL [Concomitant]
     Active Substance: LISINOPRIL
     Route: 065
  2. COBIMETINIB. [Suspect]
     Active Substance: COBIMETINIB
     Indication: SQUAMOUS CELL CARCINOMA OF SKIN
     Route: 065
  3. PRAVACHOL [Concomitant]
     Active Substance: PRAVASTATIN SODIUM
     Dosage: TAKE 1.5 TABLETS BY MOUTH DAILY.
     Route: 065
  4. BENADRYL [Concomitant]
     Active Substance: DIPHENHYDRAMINE HYDROCHLORIDE
  5. PROVENTIL [Concomitant]
     Active Substance: ALBUTEROL
     Dosage: 2 MG/5 ML SYRUP. ?TAKE 2 MG BY MOUTH EVERY 6 (SIX) HOURS AS NEEDED.
     Route: 065
  6. TYLENOL PM [Concomitant]
     Active Substance: ACETAMINOPHEN\DIPHENHYDRAMINE
     Dosage: 25-500 MG TABLET
     Route: 065
  7. DILAUDID [Concomitant]
     Active Substance: HYDROMORPHONE HYDROCHLORIDE
     Indication: PAIN
     Dosage: TAKE 1-2 TABLETS (2-4 MG) BY MOUTH EVERY 4 (FOUR) HOURS AS NEEDED
     Route: 065
  8. CELEXA [Concomitant]
     Active Substance: CITALOPRAM HYDROBROMIDE
     Route: 065
  9. LYRICA [Concomitant]
     Active Substance: PREGABALIN
     Route: 065
  10. STIOLTO RESPIMAT [Concomitant]
     Active Substance: OLODATEROL HYDROCHLORIDE\TIOTROPIUM BROMIDE MONOHYDRATE
     Dosage: 2.5-2.5 MCG/ACTUATION MIST INHALE 1 SPRAY BY MOUTH DAILY.
     Route: 065
  11. TYLENOL [Concomitant]
     Active Substance: ACETAMINOPHEN
  12. CEFTRIAXONE. [Concomitant]
     Active Substance: CEFTRIAXONE
  13. SPIRIVA RESPIMAT [Concomitant]
     Active Substance: TIOTROPIUM BROMIDE
     Dosage: 2.5 MCG/ACTUATION MIST INHALE 1 SPRAY BY MOUTH DAILY.
     Route: 065
  14. SOLU-MEDROL [Concomitant]
     Active Substance: METHYLPREDNISOLONE SODIUM SUCCINATE
  15. NORVASC [Concomitant]
     Active Substance: AMLODIPINE BESYLATE
     Route: 065
  16. GLUCOPHAGE [METFORMIN] [Concomitant]
     Route: 065
  17. TENORMIN [Concomitant]
     Active Substance: ATENOLOL
     Route: 065
  18. SYMBICORT [Concomitant]
     Active Substance: BUDESONIDE\FORMOTEROL FUMARATE DIHYDRATE
     Dosage: 160-4.5 MCG/ACTUATION INHALER?INHALE 2 PUFFS BY MOUTH TWICE DAILY.
     Route: 065
  19. ZOFRAN [Concomitant]
     Active Substance: ONDANSETRON HYDROCHLORIDE
     Indication: NAUSEA
     Dosage: TAKE 1 TABLET (8 MG) BY MOUTH EVERY 8 (EIGHT) HOURS AS NEEDED
     Route: 065
  20. ZOFRAN [Concomitant]
     Active Substance: ONDANSETRON HYDROCHLORIDE
     Indication: VOMITING
  21. ATEZOLIZUMAB. [Suspect]
     Active Substance: ATEZOLIZUMAB
     Indication: SQUAMOUS CELL CARCINOMA OF SKIN
     Route: 042
     Dates: start: 20191216
  22. AMARYL [Concomitant]
     Active Substance: GLIMEPIRIDE
     Route: 065
  23. FLOMAX [Concomitant]
     Active Substance: TAMSULOSIN HYDROCHLORIDE
     Dosage: 0.4 MG 24 HR CAPSULE?TAKE 0.4 MG BY MOUTH DAILY.
     Route: 065
  24. SYNTHROID [Concomitant]
     Active Substance: LEVOTHYROXINE SODIUM
     Dosage: 88 MCG
     Route: 065

REACTIONS (4)
  - Dyspnoea [Recovered/Resolved]
  - Wound haemorrhage [Unknown]
  - Cyanosis [Recovered/Resolved]
  - Syncope [Recovered/Resolved]

NARRATIVE: CASE EVENT DATE: 20191216
